FAERS Safety Report 10952194 (Version 2)
Quarter: 2015Q2

REPORT INFORMATION
  Report Type: Spontaneous
  Country: US (occurrence: US)
  Receive Date: 20150325
  Receipt Date: 20150428
  Transmission Date: 20150821
  Serious: Yes (Other)
  Sender: FDA-Public Use
  Company Number: US-BAYER-2015-066209

PATIENT
  Age: 54 Year
  Sex: Female

DRUGS (11)
  1. GALENIC /HYDROCHLOROTHIAZIDE/VALSARTAN/ [Concomitant]
     Active Substance: HYDROCHLOROTHIAZIDE\VALSARTAN
  2. HYDROCODONE [Concomitant]
     Active Substance: HYDROCODONE
  3. TIZANIDINE (TIZANIDINE) [Concomitant]
     Active Substance: TIZANIDINE
  4. IBUPROFEN. [Concomitant]
     Active Substance: IBUPROFEN
  5. YASMIN [Suspect]
     Active Substance: DROSPIRENONE\ETHINYL ESTRADIOL
     Indication: PREMENSTRUAL SYNDROME
     Dosage: UNK
     Dates: start: 2003, end: 2006
  6. METFORMIN [Concomitant]
     Active Substance: METFORMIN HYDROCHLORIDE
  7. CYMBALTA [Concomitant]
     Active Substance: DULOXETINE HYDROCHLORIDE
  8. ALLOPURINOL. [Concomitant]
     Active Substance: ALLOPURINOL
  9. OMEPRAZOLE. [Concomitant]
     Active Substance: OMEPRAZOLE
  10. LYRICA [Concomitant]
     Active Substance: PREGABALIN
  11. ROBAXIN [Concomitant]
     Active Substance: METHOCARBAMOL

REACTIONS (9)
  - Cerebrovascular accident [None]
  - Emotional distress [None]
  - Pain [None]
  - Pulmonary embolism [None]
  - Injury [None]
  - Deep vein thrombosis [None]
  - Depression [None]
  - Thrombosis [None]
  - Off label use [None]
